FAERS Safety Report 21135692 (Version 2)
Quarter: 2023Q1

REPORT INFORMATION
  Report Type: Spontaneous
  Country: ES (occurrence: ES)
  Receive Date: 20220727
  Receipt Date: 20230207
  Transmission Date: 20230417
  Serious: Yes (Death, Hospitalization, Other)
  Sender: FDA-Public Use
  Company Number: ES-CELLTRION INC.-2022ES011725

PATIENT

DRUGS (7)
  1. RITUXIMAB [Suspect]
     Active Substance: RITUXIMAB
     Indication: Myasthenia gravis
     Dosage: 375 MG/M2 WEEKLY FOR FOUR CONSECUTIVE WEEKS AND THEN MONTHLY FOR THE NEXT TWO MONTHS (NUMBER OF INFU
     Route: 042
  2. RITUXIMAB [Suspect]
     Active Substance: RITUXIMAB
     Dosage: 375 MG/M2 WEEKLY FOR FOUR CONSECUTIVE WEEKS AND THEN MONTHLY FOR THE NEXT TWO MONTHS (NUMBER OF INFU
     Route: 042
  3. RITUXIMAB [Suspect]
     Active Substance: RITUXIMAB
     Dosage: UNK, FIRST INFUSION AT AGE 54
  4. RITUXIMAB [Suspect]
     Active Substance: RITUXIMAB
     Dosage: 375 MG/M2, QW (AS PER PROTOCOL WEEKLY FOR 4 CONSECUTIVE WEEKS AND THEN MONTHLY FOR NEXT  2 MONTHS)
     Route: 042
  5. RITUXIMAB [Suspect]
     Active Substance: RITUXIMAB
     Dosage: UNK, SECOND INFUSION AT AGE 55
  6. PREDNISONE [Suspect]
     Active Substance: PREDNISONE
     Indication: Myasthenia gravis
  7. CYCLOPHOSPHAMIDE [Suspect]
     Active Substance: CYCLOPHOSPHAMIDE
     Indication: Myasthenia gravis
     Dosage: UNK

REACTIONS (9)
  - Progressive multifocal leukoencephalopathy [Fatal]
  - Cytomegalovirus infection [Fatal]
  - Pneumonia legionella [Fatal]
  - Respiratory failure [Unknown]
  - Myasthenia gravis [Unknown]
  - Hypogammaglobulinaemia [Unknown]
  - Off label use [Unknown]
  - Drug effective for unapproved indication [Unknown]
  - Product use in unapproved indication [Unknown]
